FAERS Safety Report 13591497 (Version 1)
Quarter: 2017Q2

REPORT INFORMATION
  Report Type: Report from Study
  Country: None (occurrence: GB)
  Receive Date: 20170530
  Receipt Date: 20170530
  Transmission Date: 20170830
  Serious: Yes (Hospitalization, Other)
  Sender: FDA-Public Use
  Company Number: GB-ABBVIE-17P-167-1888561-00

PATIENT
  Age: 62 Year
  Sex: Male
  Weight: 98 kg

DRUGS (4)
  1. ATORVASTATIN [Concomitant]
     Active Substance: ATORVASTATIN
     Indication: PRODUCT USED FOR UNKNOWN INDICATION
     Dates: start: 20050715
  2. CO-AMOXICLAV [Concomitant]
     Active Substance: AMOXICILLIN\CLAVULANIC ACID
     Indication: PRODUCT USED FOR UNKNOWN INDICATION
     Dates: start: 20161213, end: 20161228
  3. HUMIRA [Suspect]
     Active Substance: ADALIMUMAB
     Indication: PSORIASIS
     Route: 058
     Dates: start: 20150505, end: 20161105
  4. VALSARTAN. [Concomitant]
     Active Substance: VALSARTAN
     Indication: PRODUCT USED FOR UNKNOWN INDICATION
     Dates: start: 20050715, end: 20161201

REACTIONS (13)
  - Respiratory tract infection bacterial [Recovering/Resolving]
  - Lymphadenopathy [Unknown]
  - Chest X-ray abnormal [Unknown]
  - Decreased appetite [Unknown]
  - Weight decreased [Unknown]
  - Respiratory tract inflammation [Unknown]
  - Vision blurred [Unknown]
  - Hyperhidrosis [Unknown]
  - Drug dose omission [Unknown]
  - Malaise [Unknown]
  - Lung consolidation [Unknown]
  - Pneumonia [Not Recovered/Not Resolved]
  - Pyrexia [Unknown]

NARRATIVE: CASE EVENT DATE: 20161101
